FAERS Safety Report 7984622-7 (Version None)
Quarter: 2011Q4

REPORT INFORMATION
  Report Type: 
  Country: None (occurrence: None)
  Receive Date: 20111216
  Receipt Date: 20111206
  Transmission Date: 20120403
  Serious: Yes (Hospitalization)
  Sender: FDA-Public Use
  Company Number: US-JNJFOC-20100404265

PATIENT
  Sex: Male
  Weight: 47.8 kg

DRUGS (30)
  1. METHOTREXATE [Suspect]
     Indication: CROHN'S DISEASE
  2. BENADRYL [Concomitant]
  3. MORPHINE [Concomitant]
  4. CYTARABINE [Concomitant]
  5. OMEPRAZOLE [Concomitant]
  6. OXYCODONE HCL [Concomitant]
  7. FOLIC ACID [Concomitant]
  8. FLUCONAZOLE [Concomitant]
  9. NALBUPHINE [Concomitant]
  10. PREDNISONE TAB [Suspect]
     Indication: CROHN'S DISEASE
  11. IRON [Concomitant]
  12. SCOPOLAMINE [Concomitant]
  13. HUMIRA [Suspect]
     Indication: CROHN'S DISEASE
     Dates: start: 20090512, end: 20100331
  14. CALCIUM CARBONATE [Concomitant]
  15. IMODIUM [Concomitant]
  16. ZOSYN [Concomitant]
  17. ATIVAN [Concomitant]
  18. ALUMINUM HYDROXIDE [Concomitant]
  19. RIFAXIMIN [Concomitant]
  20. MIRALAX [Concomitant]
  21. CHLORHEXIDINE GLUCONATE [Concomitant]
  22. COTRIM [Concomitant]
  23. INFLIXIMAB [Suspect]
     Indication: CROHN'S DISEASE
     Dosage: PRIOR TO REGISTRY
     Route: 042
     Dates: start: 20051103, end: 20090429
  24. CHOLECALCIFEROL [Concomitant]
  25. ZOFRAN [Concomitant]
  26. PEPTAMEN [Concomitant]
  27. ZANTAC [Concomitant]
  28. VANCOMYCIN [Concomitant]
  29. ANTIBIOTICS [Concomitant]
     Indication: INFLAMMATORY BOWEL DISEASE
  30. AUGMENTIN [Concomitant]

REACTIONS (5)
  - MULTI-ORGAN FAILURE [None]
  - MYELOID LEUKAEMIA [None]
  - TRANSFUSION REACTION [None]
  - SEPTIC SHOCK [None]
  - ACUTE MONOCYTIC LEUKAEMIA [None]
